FAERS Safety Report 4784329-3 (Version None)
Quarter: 2005Q3

REPORT INFORMATION
  Report Type: 
  Country: None (occurrence: None)
  Receive Date: 20050930
  Receipt Date: 20050922
  Transmission Date: 20060218
  Serious: Yes (Other)
  Sender: FDA-Public Use
  Company Number: US-JNJFOC-20050705646

PATIENT
  Age: 48 Year
  Sex: Female
  Weight: 92.99 kg

DRUGS (3)
  1. RISPERDAL CONSTA [Suspect]
     Route: 030
  2. LOVASTATIN [Concomitant]
     Indication: HYPERCHOLESTEROLAEMIA
  3. PAXIL [Concomitant]
     Indication: DEPRESSION

REACTIONS (2)
  - ALOPECIA [None]
  - ANAL CANCER [None]
